FAERS Safety Report 7866076-4 (Version None)
Quarter: 2011Q4

REPORT INFORMATION
  Report Type: 
  Country: None (occurrence: None)
  Receive Date: 20111028
  Receipt Date: 20110419
  Transmission Date: 20120403
  Serious: No
  Sender: FDA-Public Use
  Company Number: US-GLAXOSMITHKLINE-A0923595A

PATIENT
  Age: 91 Year
  Sex: Female

DRUGS (7)
  1. WARFARIN SODIUM [Concomitant]
  2. LEVOTHYROXINE SODIUM [Suspect]
  3. LISINOPRIL [Concomitant]
  4. ADVAIR DISKUS 100/50 [Suspect]
     Indication: CHRONIC OBSTRUCTIVE PULMONARY DISEASE
     Dosage: 1PUFF TWICE PER DAY
     Route: 055
  5. LANOXIN [Concomitant]
  6. SINGULAIR [Concomitant]
  7. DILTIAZEM HCL [Concomitant]

REACTIONS (3)
  - HOT FLUSH [None]
  - PRURITUS [None]
  - RASH [None]
